FAERS Safety Report 13825097 (Version 4)
Quarter: 2017Q3

REPORT INFORMATION
  Report Type: Report from Study
  Country: US (occurrence: US)
  Receive Date: 20170802
  Receipt Date: 20170903
  Transmission Date: 20171127
  Serious: Yes (Life-Threatening, Other)
  Sender: FDA-Public Use
  Company Number: PHEH2017US023037

PATIENT
  Age: 63 Year
  Sex: Female

DRUGS (1)
  1. COSENTYX [Suspect]
     Active Substance: SECUKINUMAB
     Indication: PSORIATIC ARTHROPATHY
     Dosage: 300 MG, QW
     Route: 058
     Dates: start: 20170528, end: 20170625

REACTIONS (23)
  - Apparent death [Unknown]
  - Skin discolouration [Unknown]
  - Renal pain [Recovered/Resolved]
  - Dysphonia [Recovering/Resolving]
  - Choking [Unknown]
  - Tooth abscess [Unknown]
  - Frustration tolerance decreased [Unknown]
  - Headache [Unknown]
  - Skin oedema [Unknown]
  - Pain [Not Recovered/Not Resolved]
  - Malaise [Unknown]
  - Oropharyngeal pain [Not Recovered/Not Resolved]
  - Movement disorder [Unknown]
  - Throat lesion [Recovering/Resolving]
  - Scratch [Unknown]
  - Pruritus generalised [Unknown]
  - Stomatitis [Unknown]
  - Insomnia [Unknown]
  - Pruritus [Recovered/Resolved]
  - Oral herpes [Unknown]
  - Laryngitis [Recovering/Resolving]
  - Ear pain [Not Recovered/Not Resolved]
  - Throat tightness [Unknown]

NARRATIVE: CASE EVENT DATE: 20170528
